FAERS Safety Report 4353726-2 (Version None)
Quarter: 2004Q2

REPORT INFORMATION
  Report Type: 
  Country: None (occurrence: None)
  Receive Date: 20040430
  Receipt Date: 20040128
  Transmission Date: 20050107
  Serious: Yes (Other)
  Sender: FDA-Public Use
  Company Number: 204435

PATIENT
  Sex: Male
  Weight: 98 kg

DRUGS (13)
  1. XOLAIR [Suspect]
     Indication: ASTHMA
     Dosage: 300 MG, 1/MONTH, SUBCUTANEOUS
     Route: 058
     Dates: start: 20030925
  2. ADVAIR (SALMETEROL, XINAFOATE, FLUTICASONE PROPIONATE) [Concomitant]
  3. VENTOLINE (ALBUTEROL, ALBUTEROL SULFATE) [Concomitant]
  4. ATROVENT [Concomitant]
  5. ZOCOR [Concomitant]
  6. PLAVIX [Concomitant]
  7. VIOXX [Concomitant]
  8. ATIVAN [Concomitant]
  9. CARDIZEM [Concomitant]
  10. DURATUSS-G (GUAIFENESIN) [Concomitant]
  11. ZADITOR (KETOTIFEN FUMARATE) [Concomitant]
  12. PROCARDIA XL [Concomitant]
  13. DESOCORT (DESONIDE) [Concomitant]

REACTIONS (1)
  - PROSTATE CANCER [None]
